FAERS Safety Report 8256300-0 (Version None)
Quarter: 2012Q1

REPORT INFORMATION
  Report Type: 
  Country: None (occurrence: None)
  Receive Date: 20120330
  Receipt Date: 20120317
  Transmission Date: 20120608
  Serious: Yes (Other)
  Sender: FDA-Public Use
  Company Number: JP-2012-14533

PATIENT

DRUGS (1)
  1. SAMSCA [Suspect]
     Dosage: 7.5;15 MG, DAILY DOSE, ORAL
     Route: 048

REACTIONS (2)
  - CARDIAC AMYLOIDOSIS [None]
  - RENAL FAILURE [None]
